FAERS Safety Report 13324815 (Version 2)
Quarter: 2017Q1

REPORT INFORMATION
  Report Type: Report from Study
  Country: GR (occurrence: GR)
  Receive Date: 20170310
  Receipt Date: 20170313
  Transmission Date: 20170428
  Serious: Yes (Death, Other)
  Sender: FDA-Public Use
  Company Number: GR-PFIZER INC-2017094516

PATIENT
  Age: 70 Year
  Sex: Male

DRUGS (2)
  1. MEROPENEM. [Suspect]
     Active Substance: MEROPENEM
     Indication: KLEBSIELLA INFECTION
     Dosage: 2 G, (HIGH DOSE), (EVERY 8 H) (3-HOUR INFUSION)
  2. ERTAPENEM [Suspect]
     Active Substance: ERTAPENEM
     Indication: KLEBSIELLA INFECTION
     Dosage: 1 G, 1X/DAY (1-HOUR INFUSION) (ADMINISTERED 1 H PRIOR TO THE FIRST DOSE OF MEROPENEM)

REACTIONS (1)
  - Meningitis [Fatal]
